FAERS Safety Report 16018127 (Version 1)
Quarter: 2019Q1

REPORT INFORMATION
  Report Type: Spontaneous
  Country: US (occurrence: US)
  Receive Date: 20190201
  Receipt Date: 20190201
  Transmission Date: 20190418
  Serious: Yes (Other)
  Sender: FDA-Public Use
  Company Number: None

PATIENT
  Age: 69 Year
  Sex: Male
  Weight: 75.75 kg

DRUGS (1)
  1. DURVALUMAB. [Suspect]
     Active Substance: DURVALUMAB
     Indication: MALIGNANT PALATE NEOPLASM
     Route: 042
     Dates: start: 20180918

REACTIONS (7)
  - Hypotension [None]
  - Dizziness [None]
  - Hypophagia [None]
  - Acute kidney injury [None]
  - Diarrhoea [None]
  - Hypokalaemia [None]
  - Dysgeusia [None]

NARRATIVE: CASE EVENT DATE: 20181206
